FAERS Safety Report 11851909 (Version 1)
Quarter: 2015Q4

REPORT INFORMATION
  Report Type: Spontaneous
  Country: JP (occurrence: JP)
  Receive Date: 20151218
  Receipt Date: 20151218
  Transmission Date: 20160305
  Serious: Yes (Hospitalization)
  Sender: FDA-Public Use
  Company Number: JP-IPCA LABORATORIES LIMITED-IPC201512-000847

PATIENT
  Age: 89 Year
  Sex: Male

DRUGS (1)
  1. FUROSEMIDE. [Suspect]
     Active Substance: FUROSEMIDE
     Route: 042

REACTIONS (1)
  - Cardiac output decreased [Recovered/Resolved]
